FAERS Safety Report 9249578 (Version 4)
Quarter: 2013Q2

REPORT INFORMATION
  Report Type: Spontaneous
  Country: GB (occurrence: GB)
  Receive Date: 20130423
  Receipt Date: 20130606
  Transmission Date: 20140414
  Serious: Yes (Other)
  Sender: FDA-Public Use
  Company Number: GB-SAVIENT-2013S1000020

PATIENT
  Age: 61 Year
  Sex: Male

DRUGS (7)
  1. KRYSTEXXA [Suspect]
     Indication: GOUT
     Route: 042
     Dates: start: 20130319, end: 20130319
  2. INDOMETHACIN [Concomitant]
     Indication: GOUT
     Route: 048
     Dates: end: 20130319
  3. ALLOPURINOL [Concomitant]
     Indication: GOUT
     Route: 048
     Dates: end: 20130319
  4. HYDROCORTISONE [Concomitant]
     Indication: ALLERGY PROPHYLAXIS
     Route: 042
     Dates: start: 20130319, end: 20130319
  5. PIRITON [Concomitant]
     Indication: ALLERGY PROPHYLAXIS
     Route: 042
     Dates: start: 20130319, end: 20130319
  6. PREDNISOLONE [Concomitant]
     Indication: PRODUCT USED FOR UNKNOWN INDICATION
     Dates: start: 20130320
  7. ANAKINRA [Concomitant]
     Indication: PRODUCT USED FOR UNKNOWN INDICATION

REACTIONS (6)
  - Peptic ulcer [Recovering/Resolving]
  - Rectal haemorrhage [Recovering/Resolving]
  - Dizziness [Recovering/Resolving]
  - Lethargy [Recovering/Resolving]
  - Gout [Recovering/Resolving]
  - Nausea [Recovering/Resolving]
